FAERS Safety Report 8373514-X (Version None)
Quarter: 2012Q2

REPORT INFORMATION
  Report Type: 
  Country: None (occurrence: None)
  Receive Date: 20120521
  Receipt Date: 20110720
  Transmission Date: 20120825
  Serious: Yes (Other)
  Sender: FDA-Public Use
  Company Number: US-TEVA-2011003812

PATIENT
  Sex: Female

DRUGS (2)
  1. RITUXAN [Concomitant]
     Indication: NODAL MARGINAL ZONE B-CELL LYMPHOMA
     Dates: start: 20110601
  2. TREANDA [Suspect]
     Indication: NODAL MARGINAL ZONE B-CELL LYMPHOMA
     Route: 042
     Dates: start: 20110601

REACTIONS (1)
  - NEUTROPENIA [None]
